FAERS Safety Report 24149618 (Version 2)
Quarter: 2024Q3

REPORT INFORMATION
  Report Type: Report from Study
  Country: NL (occurrence: NL)
  Receive Date: 20240730
  Receipt Date: 20240810
  Transmission Date: 20241017
  Serious: Yes (Death, Hospitalization)
  Sender: TEVA
  Company Number: NL-TEVA-VS-3224317

PATIENT

DRUGS (1)
  1. PREDNISOLONE [Suspect]
     Active Substance: PREDNISOLONE
     Indication: Gastrointestinal toxicity
     Route: 065

REACTIONS (1)
  - Drug ineffective [Fatal]
